FAERS Safety Report 6879150-6 (Version None)
Quarter: 2010Q3

REPORT INFORMATION
  Report Type: 
  Country: None (occurrence: None)
  Receive Date: 20100728
  Receipt Date: 20081227
  Transmission Date: 20110219
  Serious: No
  Sender: FDA-Public Use
  Company Number: US-PFIZER INC-2008160362

PATIENT
  Age: 38 Year
  Sex: Male
  Weight: 90.718 kg

DRUGS (1)
  1. CHANTIX [Suspect]
     Indication: SMOKING CESSATION THERAPY
     Dates: start: 20081201, end: 20081201

REACTIONS (6)
  - DEPRESSION [None]
  - DYSPNOEA [None]
  - IRRITABILITY [None]
  - NIGHTMARE [None]
  - PALPITATIONS [None]
  - PANIC ATTACK [None]
